FAERS Safety Report 8282648-X (Version None)
Quarter: 2012Q2

REPORT INFORMATION
  Report Type: 
  Country: None (occurrence: None)
  Receive Date: 20120413
  Receipt Date: 20120410
  Transmission Date: 20120825
  Serious: Yes (Disabling)
  Sender: FDA-Public Use
  Company Number: US-PFIZER INC-2012054581

PATIENT
  Sex: Male
  Weight: 86.2 kg

DRUGS (3)
  1. PREVACID [Concomitant]
     Dosage: 30 MG, 1X/DAY
  2. VIAGRA [Suspect]
     Indication: ERECTILE DYSFUNCTION
     Dosage: 100 MG, AS NEEDED
     Route: 048
  3. VALTREX [Concomitant]
     Dosage: UNK

REACTIONS (1)
  - DEPRESSION [None]
